FAERS Safety Report 25429644 (Version 1)
Quarter: 2025Q2

REPORT INFORMATION
  Report Type: Spontaneous
  Country: US (occurrence: US)
  Receive Date: 20250612
  Receipt Date: 20250612
  Transmission Date: 20250716
  Serious: No
  Sender: PIERRE FABRE MEDICAMENT
  Company Number: US-PFM-2025-01499

PATIENT
  Age: 1 Year
  Sex: Male
  Weight: 11.12 kg

DRUGS (2)
  1. HEMANGEOL [Suspect]
     Active Substance: PROPRANOLOL HYDROCHLORIDE
     Indication: Haemangioma
     Dosage: 4.4 ML, BID (2/DAY)
     Dates: start: 20240708, end: 20250522
  2. HEMANGEOL [Suspect]
     Active Substance: PROPRANOLOL HYDROCHLORIDE

REACTIONS (8)
  - Eczema [Unknown]
  - Abdominal discomfort [Unknown]
  - Infantile spitting up [Unknown]
  - Pyrexia [Recovered/Resolved]
  - Viral infection [Recovered/Resolved]
  - Diarrhoea [Unknown]
  - Product use issue [Unknown]
  - Off label use [Unknown]

NARRATIVE: CASE EVENT DATE: 20250515
